FAERS Safety Report 5135057-6 (Version None)
Quarter: 2006Q4

REPORT INFORMATION
  Report Type: 
  Country: None (occurrence: None)
  Receive Date: 20060831
  Receipt Date: 20060710
  Transmission Date: 20070319
  Serious: No
  Sender: FDA-Public Use
  Company Number: 2006-BP-07861BP

PATIENT
  Sex: Male

DRUGS (2)
  1. SPIRIVA [Suspect]
     Indication: CHRONIC OBSTRUCTIVE PULMONARY DISEASE
     Dosage: 18 MCG (18 MCG,1 IN 1 D),IH
     Route: 055
     Dates: start: 20060301
  2. FLOMAX [Suspect]
     Dosage: 0.4 MG (0.4 MG, 1 IN 1 D),PO
     Route: 048

REACTIONS (2)
  - OEDEMA PERIPHERAL [None]
  - PRURITUS [None]
